FAERS Safety Report 5702241-X (Version None)
Quarter: 2008Q2

REPORT INFORMATION
  Report Type: 
  Country: None (occurrence: None)
  Receive Date: 20080411
  Receipt Date: 20080204
  Transmission Date: 20081010
  Serious: No
  Sender: FDA-Public Use
  Company Number: US-ABBOTT-08P-163-0437456-00

PATIENT
  Age: 48 Year
  Sex: Male

DRUGS (1)
  1. DEPAKOTE [Suspect]
     Indication: DRUG USE FOR UNKNOWN INDICATION
     Dates: start: 20071001, end: 20071101

REACTIONS (5)
  - EJACULATION FAILURE [None]
  - ERECTILE DYSFUNCTION [None]
  - HYPERSOMNIA [None]
  - POOR QUALITY SLEEP [None]
  - SOMNOLENCE [None]
